FAERS Safety Report 22957135 (Version 2)
Quarter: 2023Q4

REPORT INFORMATION
  Report Type: Spontaneous
  Country: US (occurrence: US)
  Receive Date: 20230919
  Receipt Date: 20231017
  Transmission Date: 20240110
  Serious: Yes (Hospitalization)
  Sender: FDA-Public Use
  Company Number: US-BRISTOL-MYERS SQUIBB COMPANY-2023-131709

PATIENT
  Age: 79 Year
  Sex: Female

DRUGS (1)
  1. POMALYST [Suspect]
     Active Substance: POMALIDOMIDE
     Indication: Plasma cell myeloma
     Dosage: STOPPED UP TO 12-OCT-2023
     Route: 048
     Dates: end: 20230928

REACTIONS (3)
  - Platelet count decreased [Unknown]
  - Hypertension [Unknown]
  - Escherichia infection [Unknown]

NARRATIVE: CASE EVENT DATE: 20230906
